FAERS Safety Report 8844382 (Version 7)
Quarter: 2014Q1

REPORT INFORMATION
  Report Type: Report from Study
  Country: DE (occurrence: DE)
  Receive Date: 20121017
  Receipt Date: 20140310
  Transmission Date: 20141002
  Serious: Yes (Hospitalization)
  Sender: FDA-Public Use
  Company Number: PHHY2012DE091691

PATIENT
  Age: 25 Year
  Sex: Female

DRUGS (2)
  1. EXTAVIA [Suspect]
     Indication: MULTIPLE SCLEROSIS
     Dosage: 1 ML, QOD
     Route: 058
     Dates: start: 20120515
  2. EXTAVIA [Suspect]
     Dosage: 1 ML, QOD
     Route: 058
     Dates: start: 20121024

REACTIONS (7)
  - Sinusitis [Recovered/Resolved]
  - Purulent discharge [Recovered/Resolved]
  - Application site folliculitis [Recovered/Resolved]
  - Oral herpes [Recovered/Resolved]
  - Lip blister [Recovered/Resolved]
  - Influenza like illness [Not Recovered/Not Resolved]
  - Fatigue [Unknown]
